FAERS Safety Report 5129762-5 (Version None)
Quarter: 2006Q4

REPORT INFORMATION
  Report Type: 
  Country: None (occurrence: None)
  Receive Date: 20061018
  Receipt Date: 20060821
  Transmission Date: 20070319
  Serious: No
  Sender: FDA-Public Use
  Company Number: US-GLAXOSMITHKLINE-A0617502A

PATIENT
  Age: 56 Year
  Sex: Female

DRUGS (5)
  1. LEXIVA [Suspect]
     Indication: HIV INFECTION
     Dosage: 1400MG TWICE PER DAY
     Route: 048
     Dates: start: 20060814
  2. NEXIUM [Concomitant]
  3. VIREAD [Concomitant]
  4. EPIVIR [Concomitant]
  5. LUNESTA [Concomitant]

REACTIONS (3)
  - ANOREXIA [None]
  - DIARRHOEA [None]
  - MALAISE [None]
